FAERS Safety Report 6813251-3 (Version None)
Quarter: 2010Q3

REPORT INFORMATION
  Report Type: 
  Country: None (occurrence: None)
  Receive Date: 20100701
  Receipt Date: 20100621
  Transmission Date: 20110219
  Serious: Yes (Hospitalization, Other)
  Sender: FDA-Public Use
  Company Number: CA-ABBOTT-09P-028-0609468-00

PATIENT
  Sex: Female
  Weight: 72.64 kg

DRUGS (14)
  1. HUMIRA [Suspect]
     Indication: CROHN'S DISEASE
     Dosage: 160 MG AT WEEK 0 THEN 80 MG AT WEEK 2 THEN     40 MG EVERY 2 WEEKS
     Route: 058
     Dates: start: 20090113, end: 20100522
  2. HUMIRA [Suspect]
     Route: 058
  3. HUMIRA [Suspect]
     Route: 058
  4. IMURAN [Concomitant]
     Indication: PRODUCT USED FOR UNKNOWN INDICATION
  5. TEGRETOL [Concomitant]
     Indication: PRODUCT USED FOR UNKNOWN INDICATION
  6. PANTOPRAZOLE [Concomitant]
     Indication: PRODUCT USED FOR UNKNOWN INDICATION
  7. ATENOLOL [Concomitant]
     Indication: PRODUCT USED FOR UNKNOWN INDICATION
     Dosage: IF SYSTOLIC PRESSURE }130 : 50 MG QD - IF SYTOLIC PRESSURE {130 : 25 MG QD
  8. TETRACYCLINE [Concomitant]
     Indication: PRODUCT USED FOR UNKNOWN INDICATION
  9. SENOKOT [Concomitant]
     Indication: PRODUCT USED FOR UNKNOWN INDICATION
  10. CLONAZEPAM [Concomitant]
     Indication: PRODUCT USED FOR UNKNOWN INDICATION
  11. VITAMIN D [Concomitant]
     Indication: PRODUCT USED FOR UNKNOWN INDICATION
  12. ACTONEL [Concomitant]
     Indication: PRODUCT USED FOR UNKNOWN INDICATION
  13. ELTROXIN [Concomitant]
     Indication: HYPOTHYROIDISM
     Dates: start: 20091001
  14. NORVASC [Concomitant]
     Indication: HYPERTENSION
     Dates: start: 20100101

REACTIONS (4)
  - FEMUR FRACTURE [None]
  - INCISION SITE PRURITUS [None]
  - INTESTINAL OPERATION [None]
  - VOMITING [None]
